FAERS Safety Report 9407609 (Version 2)
Quarter: 2013Q3

REPORT INFORMATION
  Report Type: Spontaneous
  Country: GB (occurrence: GB)
  Receive Date: 20130718
  Receipt Date: 20130910
  Transmission Date: 20140515
  Serious: Yes (Other)
  Sender: FDA-Public Use
  Company Number: GB-B.I. PHARMACEUTICALS,INC./RIDGEFIELD-2013-UK-01419UK

PATIENT
  Age: 79 Year
  Sex: Male
  Weight: 105 kg

DRUGS (8)
  1. PRADAXA [Suspect]
     Indication: ATRIAL FIBRILLATION
     Dosage: 300 MG
     Route: 048
     Dates: start: 20120422, end: 20130222
  2. PRADAXA [Suspect]
     Dosage: 220 MG
     Route: 048
     Dates: start: 20130222
  3. TAMSULOSIN [Concomitant]
     Indication: BENIGN PROSTATIC HYPERPLASIA
     Dosage: 400 MG
     Route: 048
     Dates: start: 19990709
  4. LOSARTAN [Concomitant]
     Indication: HYPERTENSION
     Dosage: 100 MG
     Route: 048
     Dates: start: 20120719
  5. LOSARTAN [Concomitant]
     Indication: CARDIAC FAILURE
  6. BUMETANIDE [Concomitant]
     Indication: CARDIAC FAILURE
     Dosage: 3 MG
     Route: 048
     Dates: start: 20121129
  7. SPIROLACTON [Concomitant]
     Indication: CARDIAC FAILURE
     Dosage: 25 MG
     Route: 048
     Dates: start: 20130207
  8. BISOPROLOL [Concomitant]
     Indication: CARDIAC FAILURE
     Dosage: 1.25 MG
     Route: 048
     Dates: start: 20130211, end: 20130222

REACTIONS (2)
  - Renal impairment [Recovered/Resolved]
  - Cardiac failure [Recovered/Resolved]
